FAERS Safety Report 25614400 (Version 1)
Quarter: 2025Q3

REPORT INFORMATION
  Report Type: Report from Study
  Country: US (occurrence: US)
  Receive Date: 20250729
  Receipt Date: 20250729
  Transmission Date: 20251021
  Serious: Yes (Other)
  Sender: ABBVIE
  Company Number: US-ABBVIE-6384383

PATIENT
  Age: 77 Year
  Sex: Female

DRUGS (1)
  1. CREON [Suspect]
     Active Substance: PANCRELIPASE AMYLASE\PANCRELIPASE LIPASE\PANCRELIPASE PROTEASE
     Indication: Pancreatic failure
     Route: 048
     Dates: start: 20230901

REACTIONS (4)
  - Mammoplasty [Recovered/Resolved]
  - Skin cancer [Recovered/Resolved]
  - Scar [Unknown]
  - Breast necrosis [Unknown]

NARRATIVE: CASE EVENT DATE: 20250213
